FAERS Safety Report 8444092-1 (Version None)
Quarter: 2012Q2

REPORT INFORMATION
  Report Type: 
  Country: None (occurrence: None)
  Receive Date: 20120618
  Receipt Date: 20120614
  Transmission Date: 20120825
  Serious: Yes (Death)
  Sender: FDA-Public Use
  Company Number: PHHY2011CA93041

PATIENT
  Sex: Male

DRUGS (4)
  1. SYNTHROID [Concomitant]
  2. ZOMETA [Suspect]
     Dosage: 4 MG, EVERY 4 WEEKS
     Route: 042
     Dates: start: 20120222, end: 20120404
  3. ZOMETA [Suspect]
     Indication: METASTATIC RENAL CELL CARCINOMA
     Dosage: 4 MG, EVERY 4 WEEKS
     Route: 042
     Dates: start: 20110908
  4. ZOPICLONE [Concomitant]

REACTIONS (4)
  - NEOPLASM PROGRESSION [None]
  - NEOPLASM MALIGNANT [None]
  - BACK PAIN [None]
  - PAIN IN EXTREMITY [None]
